FAERS Safety Report 11942374 (Version 1)
Quarter: 2016Q1

REPORT INFORMATION
  Report Type: Spontaneous
  Country: US (occurrence: US)
  Receive Date: 20160125
  Receipt Date: 20160125
  Transmission Date: 20160526
  Serious: Yes (Other)
  Sender: FDA-Public Use
  Company Number: US-CIPLA LTD.-2016US00280

PATIENT

DRUGS (2)
  1. SORAFENIB [Suspect]
     Active Substance: SORAFENIB
     Indication: NEUROENDOCRINE CARCINOMA
     Dosage: 150 MG/M2, BID ON DAYS 1-5 AND 8-12 OF EACH 28-DAY COURSE
     Route: 048
  2. TOPOTECAN [Suspect]
     Active Substance: TOPOTECAN\TOPOTECAN HYDROCHLORIDE
     Indication: NEUROENDOCRINE CARCINOMA
     Dosage: 1.4 MG/M2, QD ON DAYS 1-5 AND 8-12 OF EACH 28-DAY COURSE
     Route: 048

REACTIONS (1)
  - Disease progression [Unknown]
